FAERS Safety Report 7054811-7 (Version None)
Quarter: 2010Q4

REPORT INFORMATION
  Report Type: 
  Country: None (occurrence: None)
  Receive Date: 20101021
  Receipt Date: 20101013
  Transmission Date: 20110411
  Serious: Yes (Hospitalization, Other)
  Sender: FDA-Public Use
  Company Number: US-BIOGENIDEC-2009BI008695

PATIENT
  Age: 55 Year
  Sex: Male
  Weight: 72 kg

DRUGS (7)
  1. TYSABRI [Suspect]
     Indication: MULTIPLE SCLEROSIS
     Route: 042
     Dates: start: 20080701, end: 20090305
  2. TYSABRI [Suspect]
     Dates: start: 20100419
  3. PROVIGIL [Concomitant]
  4. DITROPAN [Concomitant]
  5. ASPIRIN [Concomitant]
  6. CHLORDIAZEPOXIDE [Concomitant]
  7. OMEPRAZOLE [Concomitant]

REACTIONS (3)
  - ABDOMINAL HERNIA [None]
  - POST PROCEDURAL CONSTIPATION [None]
  - SPINDLE CELL SARCOMA [None]
